FAERS Safety Report 16674521 (Version 3)
Quarter: 2019Q3

REPORT INFORMATION
  Report Type: Spontaneous
  Country: JP (occurrence: JP)
  Receive Date: 20190806
  Receipt Date: 20190904
  Transmission Date: 20191004
  Serious: Yes (Death, Other)
  Sender: FDA-Public Use
  Company Number: JP-SA-2019SA214847

PATIENT
  Age: 49 Year
  Sex: Male

DRUGS (7)
  1. ZOLPIDEM TARTRATE. [Suspect]
     Active Substance: ZOLPIDEM TARTRATE
     Indication: PRODUCT USED FOR UNKNOWN INDICATION
     Dosage: UNK, UNK
     Route: 048
  2. BROMAZEPAM [Concomitant]
     Active Substance: BROMAZEPAM
     Dosage: UNK UNK, UNK
     Route: 065
  3. LEVOMEPROMAZINE [Concomitant]
     Active Substance: LEVOMEPROMAZINE
     Dosage: UNK UNK, UNK
     Route: 065
  4. LEVETIRACETAM. [Concomitant]
     Active Substance: LEVETIRACETAM
     Dosage: UNK UNK, UNK
     Route: 065
  5. PHENYTOIN SODIUM. [Concomitant]
     Active Substance: PHENYTOIN SODIUM
     Dosage: UNK UNK, UNK
     Route: 065
  6. PERAMPANEL [Concomitant]
     Active Substance: PERAMPANEL
     Dosage: UNK UNK, UNK
     Route: 065
  7. SODIUM VALPROATE [Concomitant]
     Active Substance: VALPROATE SODIUM
     Dosage: UNK UNK, UNK
     Route: 065

REACTIONS (2)
  - Brain neoplasm [Fatal]
  - Delirium [Fatal]
